FAERS Safety Report 6110394-7 (Version None)
Quarter: 2009Q1

REPORT INFORMATION
  Report Type: 
  Country: None (occurrence: None)
  Receive Date: 20090310
  Receipt Date: 20090305
  Transmission Date: 20090719
  Serious: Yes (Other)
  Sender: FDA-Public Use
  Company Number: CH-BRISTOL-MYERS SQUIBB COMPANY-14537005

PATIENT
  Weight: 2 kg

DRUGS (5)
  1. REYATAZ [Suspect]
     Route: 064
     Dates: start: 20080107, end: 20080930
  2. ABACAVIR + LAMIVUDINE [Suspect]
     Route: 064
  3. NORVIR [Suspect]
     Route: 064
  4. PONSTAN [Suspect]
     Route: 064
     Dates: start: 20080221, end: 20080930
  5. ZALDIAR [Suspect]
     Dosage: 1DF=325MG/37.5 MG, TABS.
     Route: 064
     Dates: start: 20080221, end: 20080930

REACTIONS (2)
  - FOETAL GROWTH RETARDATION [None]
  - WEIGHT DECREASE NEONATAL [None]
